FAERS Safety Report 23482993 (Version 2)
Quarter: 2024Q4

REPORT INFORMATION
  Report Type: Report from Study
  Country: DE (occurrence: DE)
  Receive Date: 20240205
  Receipt Date: 20241014
  Transmission Date: 20250115
  Serious: Yes (Hospitalization)
  Sender: SANDOZ
  Company Number: DE-SANDOZ-SDZ2024DE010550

PATIENT
  Sex: Female

DRUGS (1)
  1. ADALIMUMAB [Suspect]
     Active Substance: ADALIMUMAB
     Indication: Product used for unknown indication
     Dosage: 40 MG, Q2W (EVERY 2 WEEKS)
     Route: 065
     Dates: start: 202112

REACTIONS (1)
  - Vascular stenosis [Recovered/Resolved]

NARRATIVE: CASE EVENT DATE: 20231101
